FAERS Safety Report 22193712 (Version 2)
Quarter: 2023Q2

REPORT INFORMATION
  Report Type: Spontaneous
  Country: PL (occurrence: PL)
  Receive Date: 20230410
  Receipt Date: 20230414
  Transmission Date: 20230722
  Serious: Yes (Hospitalization, Other)
  Sender: FDA-Public Use
  Company Number: PL-002147023-NVSC2023PL067913

PATIENT
  Age: 48 Year
  Sex: Male

DRUGS (19)
  1. PANTOPRAZOLE [Suspect]
     Active Substance: PANTOPRAZOLE
     Dosage: 1 DOSAGE FORM, QD
     Route: 065
     Dates: start: 202203
  2. PANTOPRAZOLE [Suspect]
     Active Substance: PANTOPRAZOLE
     Dosage: 1 DOSAGE FORM, QD
     Route: 065
     Dates: start: 20220902
  3. ROSUVASTATIN [Suspect]
     Active Substance: ROSUVASTATIN
     Dosage: 1 DOSAGE FORM, QD
     Route: 065
     Dates: start: 202203
  4. ROSUVASTATIN [Suspect]
     Active Substance: ROSUVASTATIN
     Dosage: 1 DOSAGE FORM, QD
     Route: 065
     Dates: start: 20220902
  5. BISOPROLOL [Suspect]
     Active Substance: BISOPROLOL
     Indication: Hypertension
     Dosage: UNK UNK, QD
     Route: 065
     Dates: start: 2018
  6. BISOPROLOL [Suspect]
     Active Substance: BISOPROLOL
     Dosage: UNK UNK, QD
     Route: 065
     Dates: start: 202203
  7. BISOPROLOL [Suspect]
     Active Substance: BISOPROLOL
     Dosage: UNK UNK, QD
     Route: 065
     Dates: start: 20220902
  8. RAMIPRIL [Suspect]
     Active Substance: RAMIPRIL
     Dosage: 2.5 MILLIGRAM
     Route: 065
     Dates: start: 202203
  9. RAMIPRIL [Suspect]
     Active Substance: RAMIPRIL
     Dosage: UNK
     Route: 065
  10. SACUBITRIL [Concomitant]
     Active Substance: SACUBITRIL
     Dosage: UNK UNK, BID
     Route: 065
     Dates: start: 20220902
  11. SACUBITRIL [Concomitant]
     Active Substance: SACUBITRIL
     Dosage: UNK
     Route: 065
  12. EPLERENONE [Concomitant]
     Active Substance: EPLERENONE
     Dosage: UNK UNK, QD
     Route: 065
     Dates: start: 202203
  13. EPLERENONE [Concomitant]
     Active Substance: EPLERENONE
     Dosage: UNK UNK, QD
     Route: 065
     Dates: start: 20220902
  14. VALSARTAN [Concomitant]
     Active Substance: VALSARTAN
     Dosage: UNK
     Route: 065
  15. VALSARTAN [Concomitant]
     Active Substance: VALSARTAN
     Dosage: UNK UNK, BID
     Route: 065
     Dates: start: 20220902
  16. TICAGRELOR [Concomitant]
     Active Substance: TICAGRELOR
     Dosage: UNK UNK, BID
     Route: 065
     Dates: start: 20220902
  17. TICAGRELOR [Concomitant]
     Active Substance: TICAGRELOR
     Dosage: UNK UNK, QD
     Route: 065
     Dates: start: 202203
  18. ASPIRIN [Concomitant]
     Active Substance: ASPIRIN
     Dosage: UNK UNK, QD
     Route: 065
     Dates: start: 202203
  19. ASPIRIN [Concomitant]
     Active Substance: ASPIRIN
     Dosage: UNK UNK, QD
     Route: 065
     Dates: start: 20220902

REACTIONS (5)
  - Chest pain [Unknown]
  - SARS-CoV-2 test positive [Unknown]
  - Cardiac failure chronic [Recovering/Resolving]
  - Mitral valve incompetence [Unknown]
  - Tricuspid valve incompetence [Unknown]

NARRATIVE: CASE EVENT DATE: 20220301
